FAERS Safety Report 14032465 (Version 1)
Quarter: 2017Q4

REPORT INFORMATION
  Report Type: Spontaneous
  Country: JP (occurrence: JP)
  Receive Date: 20171002
  Receipt Date: 20171002
  Transmission Date: 20180321
  Serious: Yes (Other)
  Sender: FDA-Public Use
  Company Number: JP-JUBILANT CADISTA PHARMACEUTICALS-2017JUB00342

PATIENT
  Age: 69 Year
  Sex: Male

DRUGS (2)
  1. OLANZAPINE. [Suspect]
     Active Substance: OLANZAPINE
     Indication: BIPOLAR DISORDER
     Dosage: 17.5 MG, 1X/DAY (INCREASING 2.5 TO 5.0 MG/DAY PER 2 WEEKS)
     Route: 065
  2. LITHIUM. [Concomitant]
     Active Substance: LITHIUM
     Indication: BIPOLAR DISORDER
     Dosage: 800, 1X/DAY (INCREASING 100-200 MG/DAY PER 2 WEEKS)
     Route: 065

REACTIONS (2)
  - Persecutory delusion [Recovered/Resolved]
  - Psychomotor hyperactivity [Recovered/Resolved]
